FAERS Safety Report 25661883 (Version 2)
Quarter: 2025Q3

REPORT INFORMATION
  Report Type: Spontaneous
  Country: US (occurrence: US)
  Receive Date: 20250809
  Receipt Date: 20250828
  Transmission Date: 20251021
  Serious: No
  Sender: SANDOZ
  Company Number: US-SANDOZ-SDZ2025US054877

PATIENT
  Age: 68 Year
  Sex: Male

DRUGS (2)
  1. ALBUTEROL SULFATE [Suspect]
     Active Substance: ALBUTEROL SULFATE
     Indication: Product used for unknown indication
     Route: 055
  2. ALBUTEROL SULFATE [Suspect]
     Active Substance: ALBUTEROL SULFATE
     Route: 055

REACTIONS (2)
  - Device use issue [Unknown]
  - Device delivery system issue [Unknown]
